FAERS Safety Report 19966751 (Version 3)
Quarter: 2021Q4

REPORT INFORMATION
  Report Type: Spontaneous
  Country: US (occurrence: US)
  Receive Date: 20211019
  Receipt Date: 20211230
  Transmission Date: 20220303
  Serious: Yes (Other)
  Sender: FDA-Public Use
  Company Number: US-BEH-2021136796

PATIENT
  Age: 22 Year
  Sex: Female

DRUGS (11)
  1. HIZENTRA [Suspect]
     Active Substance: HUMAN IMMUNOGLOBULIN G
     Indication: Immunodeficiency common variable
     Dosage: 12 GRAM, QW
     Route: 058
     Dates: start: 20200501
  2. HIZENTRA [Suspect]
     Active Substance: HUMAN IMMUNOGLOBULIN G
     Dosage: 12 GRAM, QW
     Route: 058
     Dates: start: 20200501
  3. HIZENTRA [Suspect]
     Active Substance: HUMAN IMMUNOGLOBULIN G
     Dosage: 12 GRAM, QW
     Route: 058
     Dates: start: 20200501
  4. HIZENTRA [Suspect]
     Active Substance: HUMAN IMMUNOGLOBULIN G
     Dosage: UNK
     Route: 065
     Dates: start: 20211005
  5. HIZENTRA [Suspect]
     Active Substance: HUMAN IMMUNOGLOBULIN G
     Dosage: UNK
     Route: 065
     Dates: start: 20211014
  6. HIZENTRA [Suspect]
     Active Substance: HUMAN IMMUNOGLOBULIN G
     Dosage: UNK
     Route: 065
     Dates: start: 20211021
  7. EPINEPHRINE [Concomitant]
     Active Substance: EPINEPHRINE
  8. KETOCONAZOLE [Concomitant]
     Active Substance: KETOCONAZOLE
     Dosage: 2 PERCENT
  9. OMEPRAZOLE [Concomitant]
     Active Substance: OMEPRAZOLE
     Dosage: 20 MILLIGRAM
  10. CIPROFLOXACIN HYDROCHLORIDE [Concomitant]
     Active Substance: CIPROFLOXACIN HYDROCHLORIDE
     Route: 065
  11. MOMETASONE [Concomitant]
     Active Substance: MOMETASONE
     Route: 065

REACTIONS (24)
  - Dyspnoea [Unknown]
  - Dyspnoea [Unknown]
  - Infusion site erythema [Recovered/Resolved]
  - Infusion site swelling [Recovered/Resolved]
  - Infusion site extravasation [Unknown]
  - Headache [Unknown]
  - Infusion site bruising [Unknown]
  - Infusion site swelling [Unknown]
  - Infusion site warmth [Unknown]
  - Fatigue [Unknown]
  - Blood pressure increased [Unknown]
  - Swelling [Unknown]
  - Blood pressure increased [Unknown]
  - Throat tightness [Unknown]
  - Erythema [Unknown]
  - Infusion site erythema [Unknown]
  - Flushing [Unknown]
  - Swelling [Unknown]
  - Blood pressure increased [Unknown]
  - Throat tightness [Unknown]
  - Erythema [Unknown]
  - Infusion site erythema [Unknown]
  - Flushing [Unknown]
  - Drug ineffective [Unknown]

NARRATIVE: CASE EVENT DATE: 20211005
